FAERS Safety Report 9547316 (Version 1)
Quarter: 2013Q3

REPORT INFORMATION
  Report Type: Spontaneous
  Country: US (occurrence: None)
  Receive Date: 20130919
  Receipt Date: 20130919
  Transmission Date: 20140515
  Serious: Yes (Hospitalization, Other)
  Sender: FDA-Public Use
  Company Number: 2013TUS000178

PATIENT
  Age: 82 Year
  Sex: Male

DRUGS (2)
  1. COLCHICINE [Suspect]
     Indication: GOUT
  2. SUNITINIB [Suspect]

REACTIONS (18)
  - Metabolic acidosis [None]
  - Pyrexia [None]
  - Pneumonia [None]
  - Neutrophil toxic granulation present [None]
  - Anaemia [None]
  - Circulatory collapse [None]
  - Hypotension [None]
  - Cardiac failure acute [None]
  - Diarrhoea [None]
  - Thrombocytopenia [None]
  - Overdose [None]
  - Toxicity to various agents [None]
  - Gout [None]
  - Band neutrophil percentage increased [None]
  - Red blood cell burr cells present [None]
  - Spur cell anaemia [None]
  - Leukopenia [None]
  - Shift to the left [None]
